FAERS Safety Report 22603519 (Version 2)
Quarter: 2023Q2

REPORT INFORMATION
  Report Type: Report from Study
  Country: US (occurrence: US)
  Receive Date: 20230615
  Receipt Date: 20230619
  Transmission Date: 20230721
  Serious: Yes (Hospitalization)
  Sender: FDA-Public Use
  Company Number: US-ABBVIE-5286585

PATIENT
  Age: 87 Year
  Sex: Male
  Weight: 73.481 kg

DRUGS (7)
  1. VENCLEXTA [Suspect]
     Active Substance: VENETOCLAX
     Indication: Acute myeloid leukaemia
     Dosage: FORM STRENGTH: 100 MG
     Route: 048
     Dates: start: 20230522, end: 20230612
  2. VENCLEXTA [Suspect]
     Active Substance: VENETOCLAX
     Indication: Acute myeloid leukaemia
     Dosage: FORM STRENGTH: 100 MG
     Route: 048
     Dates: start: 20220608, end: 20220614
  3. VENCLEXTA [Suspect]
     Active Substance: VENETOCLAX
     Indication: Acute myeloid leukaemia
     Dosage: FORM STRENGTH: 100 MG
     Route: 048
     Dates: start: 20220605, end: 20220607
  4. VENCLEXTA [Suspect]
     Active Substance: VENETOCLAX
     Indication: Acute myeloid leukaemia
     Dosage: FORM STRENGTH: 100 MG
     Route: 048
     Dates: start: 20220615, end: 20220815
  5. CIPROFLOXACIN [Concomitant]
     Active Substance: CIPROFLOXACIN
     Indication: White blood cell count
  6. ACYCLOVIR [Concomitant]
     Active Substance: ACYCLOVIR
     Indication: White blood cell count
  7. FLUCONAZOLE [Concomitant]
     Active Substance: FLUCONAZOLE
     Indication: White blood cell count

REACTIONS (10)
  - Oral disorder [Recovered/Resolved]
  - Weight decreased [Recovered/Resolved]
  - Product use complaint [Unknown]
  - Oral disorder [Unknown]
  - Malocclusion [Recovered/Resolved]
  - Tooth disorder [Unknown]
  - Feeding disorder [Recovered/Resolved]
  - Dysphagia [Recovered/Resolved]
  - Oral pain [Unknown]
  - Loose tooth [Recovered/Resolved]

NARRATIVE: CASE EVENT DATE: 20220601
